FAERS Safety Report 9702039 (Version 1)
Quarter: 2013Q4

REPORT INFORMATION
  Report Type: Spontaneous
  Country: US (occurrence: None)
  Receive Date: 20131120
  Receipt Date: 20131120
  Transmission Date: 20140711
  Serious: Yes (Other)
  Sender: FDA-Public Use
  Company Number: None

PATIENT
  Sex: Female

DRUGS (10)
  1. PROLIA [Suspect]
     Indication: OSTEOPOROSIS PROPHYLAXIS
     Dosage: 2X YEAR BY INJECTION
     Dates: start: 201301, end: 201307
  2. SIMVASTATIN [Concomitant]
  3. HYDROCODON [Concomitant]
  4. ACETOMINOPHEN [Concomitant]
  5. CLOPIDOGREL [Concomitant]
  6. ASPIRIN [Concomitant]
  7. VITAMIN C [Concomitant]
  8. B-12 [Concomitant]
  9. VITAMIN D 3 [Concomitant]
  10. TYLENOL EXTRA STRENGTH [Concomitant]

REACTIONS (9)
  - Rash erythematous [None]
  - Pain [None]
  - Chemical injury [None]
  - Skin ulcer [None]
  - Joint swelling [None]
  - Feeling abnormal [None]
  - Back pain [None]
  - Bone pain [None]
  - Oral disorder [None]
